FAERS Safety Report 7346937-5 (Version None)
Quarter: 2011Q1

REPORT INFORMATION
  Report Type: 
  Country: None (occurrence: None)
  Receive Date: 20110218
  Receipt Date: 20100217
  Transmission Date: 20110831
  Serious: Yes (Other)
  Sender: FDA-Public Use
  Company Number: CART-1000001

PATIENT
  Age: 50 Year
  Sex: Male
  Weight: 122.4 kg

DRUGS (1)
  1. CARTICEL [Suspect]
     Indication: CHONDROPATHY
     Dosage: INTRA-ARTICULAR
     Route: 014
     Dates: start: 20050114, end: 20050114

REACTIONS (2)
  - ARTHROFIBROSIS [None]
  - ARTHRALGIA [None]
